FAERS Safety Report 6177226-2 (Version None)
Quarter: 2009Q2

REPORT INFORMATION
  Report Type: 
  Country: None (occurrence: None)
  Receive Date: 20090430
  Receipt Date: 20090430
  Transmission Date: 20091009
  Serious: Yes (Hospitalization)
  Sender: FDA-Public Use
  Company Number: None

PATIENT
  Sex: Male
  Weight: 58 kg

DRUGS (2)
  1. CISPLATIN [Suspect]
     Dosage: 128 MG
     Dates: end: 20090402
  2. VINORELBINE TARTRATE [Suspect]
     Dosage: 102 MG
     Dates: end: 20090409

REACTIONS (7)
  - ANOREXIA [None]
  - DEHYDRATION [None]
  - DIARRHOEA [None]
  - FATIGUE [None]
  - HYPOKALAEMIA [None]
  - NEUTROPENIA [None]
  - PNEUMONIA [None]
